FAERS Safety Report 7337265-2 (Version None)
Quarter: 2011Q1

REPORT INFORMATION
  Report Type: 
  Country: None (occurrence: None)
  Receive Date: 20110224
  Receipt Date: 20110217
  Transmission Date: 20110831
  Serious: Yes (Hospitalization)
  Sender: FDA-Public Use
  Company Number: 2011AC000016

PATIENT
  Age: 73 Year
  Sex: Female

DRUGS (20)
  1. ZOLOFT [Concomitant]
  2. CALCIUM [Concomitant]
  3. ULTRAM [Concomitant]
  4. GLUCOSAMINE [Concomitant]
  5. DEMADEX [Concomitant]
  6. COREG [Concomitant]
  7. AMIODARONE HCL [Concomitant]
  8. COZAAR [Concomitant]
  9. ASCORBIC ACID [Concomitant]
  10. PLAVIX [Concomitant]
  11. SYNTHROID [Concomitant]
  12. COQ10 [Concomitant]
  13. LOVAZA [Concomitant]
  14. ASPIRIN [Concomitant]
  15. DIGOXIN [Suspect]
     Dosage: 0.125 MG;QD;PO
     Route: 048
     Dates: start: 20080205, end: 20080501
  16. NEURONTIN [Concomitant]
  17. CLONIDINE [Concomitant]
  18. PROTONIX [Concomitant]
  19. HUMULIN R [Concomitant]
  20. MAGNESIUM [Concomitant]

REACTIONS (22)
  - BLOOD UREA INCREASED [None]
  - BLOOD GLUCOSE INCREASED [None]
  - BLOOD BICARBONATE INCREASED [None]
  - BRAIN NATRIURETIC PEPTIDE INCREASED [None]
  - TOXICITY TO VARIOUS AGENTS [None]
  - DECREASED APPETITE [None]
  - BUNDLE BRANCH BLOCK RIGHT [None]
  - BLOOD CREATININE INCREASED [None]
  - RENAL FAILURE [None]
  - ELECTROCARDIOGRAM CHANGE [None]
  - NAUSEA [None]
  - ASTHENIA [None]
  - BUNDLE BRANCH BLOCK LEFT [None]
  - BLOOD CHLORIDE DECREASED [None]
  - BRADYCARDIA [None]
  - ATRIAL FIBRILLATION [None]
  - CARDIAC FAILURE CONGESTIVE [None]
  - INJURY [None]
  - FATIGUE [None]
  - ECONOMIC PROBLEM [None]
  - RENAL FAILURE CHRONIC [None]
  - ANAEMIA [None]
